FAERS Safety Report 9611793 (Version 1)
Quarter: 2013Q4

REPORT INFORMATION
  Report Type: Spontaneous
  Country: FR (occurrence: FR)
  Receive Date: 20131010
  Receipt Date: 20131010
  Transmission Date: 20140711
  Serious: Yes (Other)
  Sender: FDA-Public Use
  Company Number: FR-JNJFOC-20131002938

PATIENT
  Sex: Male

DRUGS (4)
  1. EPITOMAX [Suspect]
     Indication: PRODUCT USED FOR UNKNOWN INDICATION
     Route: 048
  2. LAROXYL [Concomitant]
     Route: 065
  3. PROPRANOLOL [Concomitant]
     Route: 065
  4. NOCERTONE [Concomitant]
     Route: 065

REACTIONS (1)
  - Vitiligo [Unknown]
